FAERS Safety Report 9473228 (Version 2)
Quarter: 2013Q3

REPORT INFORMATION
  Report Type: Spontaneous
  Country: US (occurrence: US)
  Receive Date: 20130823
  Receipt Date: 20130823
  Transmission Date: 20140515
  Serious: No
  Sender: FDA-Public Use
  Company Number: US-BRISTOL-MYERS SQUIBB COMPANY-18799072

PATIENT
  Age: 73 Year
  Sex: Female
  Weight: 58.96 kg

DRUGS (12)
  1. SPRYCEL (CML) TABS 100 MG [Suspect]
     Indication: CHRONIC MYELOID LEUKAEMIA
     Dosage: EXP DATE:NOV15
     Dates: start: 20130306
  2. SPIRIVA [Concomitant]
  3. SYMBICORT [Concomitant]
  4. PREDNISONE [Concomitant]
     Indication: PANCREATITIS
  5. CALCIUM [Concomitant]
  6. VITAMIN D [Concomitant]
  7. METFORMIN [Concomitant]
  8. PREDNISONE [Concomitant]
     Dosage: ANOTHER 7.5MG QD
  9. RAMIPRIL [Concomitant]
  10. ASPIRIN [Concomitant]
  11. SYMBICORT [Concomitant]
     Dosage: INHALER
  12. SPIRIVA [Concomitant]

REACTIONS (5)
  - Upper respiratory tract infection [Unknown]
  - Hunger [Unknown]
  - Nausea [Unknown]
  - Dysgeusia [Unknown]
  - Contusion [Unknown]
